FAERS Safety Report 10548985 (Version 4)
Quarter: 2014Q4

REPORT INFORMATION
  Report Type: Spontaneous
  Country: US (occurrence: US)
  Receive Date: 20141028
  Receipt Date: 20141118
  Transmission Date: 20150529
  Serious: Yes (Hospitalization)
  Sender: FDA-Public Use
  Company Number: US-JNJFOC-20141010553

PATIENT
  Age: 45 Year
  Sex: Female
  Weight: 62.6 kg

DRUGS (10)
  1. FLURAZEPAM [Concomitant]
     Active Substance: FLURAZEPAM\FLURAZEPAM HYDROCHLORIDE
     Route: 065
  2. BENADRYL [Suspect]
     Active Substance: DIPHENHYDRAMINE HYDROCHLORIDE
     Route: 065
  3. LORAZEPAM. [Concomitant]
     Active Substance: LORAZEPAM
     Route: 065
  4. BENADRYL [Suspect]
     Active Substance: DIPHENHYDRAMINE HYDROCHLORIDE
     Indication: PRODUCT USED FOR UNKNOWN INDICATION
     Route: 065
  5. ONDANSETRON [Concomitant]
     Active Substance: ONDANSETRON
     Route: 065
  6. CISAPRIDE [Concomitant]
     Active Substance: CISAPRIDE
     Indication: GASTROINTESTINAL MOTILITY DISORDER
     Dosage: ON 22-AUG-2013 CHANGED TO 5MG (? TABLET) BID. ON 03-SEP-2013 CHANGED TO 5MG (? TABLET) TID.
     Route: 048
     Dates: start: 20130703
  7. PREMARIN [Concomitant]
     Active Substance: ESTROGENS, CONJUGATED
     Route: 065
  8. CISAPRIDE [Concomitant]
     Active Substance: CISAPRIDE
     Indication: GASTROOESOPHAGEAL REFLUX DISEASE
     Dosage: ON 22-AUG-2013 CHANGED TO 5MG (? TABLET) BID. ON 03-SEP-2013 CHANGED TO 5MG (? TABLET) TID.
     Route: 048
     Dates: start: 20130703
  9. ALBUTEROL. [Concomitant]
     Active Substance: ALBUTEROL
     Route: 065
  10. HYDROMORPHONE [Concomitant]
     Active Substance: HYDROMORPHONE
     Route: 065

REACTIONS (4)
  - Impaired gastric emptying [Recovered/Resolved]
  - Pyrexia [Recovered/Resolved]
  - Wrong technique in drug usage process [Unknown]
  - Hypokalaemia [Recovered/Resolved]

NARRATIVE: CASE EVENT DATE: 20131106
